FAERS Safety Report 6578245-4 (Version None)
Quarter: 2010Q1

REPORT INFORMATION
  Report Type: 
  Country: None (occurrence: None)
  Receive Date: 20100211
  Receipt Date: 20100209
  Transmission Date: 20100710
  Serious: Yes (Other)
  Sender: FDA-Public Use
  Company Number: A0843829A

PATIENT
  Sex: Female

DRUGS (1)
  1. SERETIDE [Suspect]
     Indication: DRUG USE FOR UNKNOWN INDICATION
     Route: 065

REACTIONS (32)
  - ABDOMINAL PAIN UPPER [None]
  - ALOPECIA [None]
  - AMNESIA [None]
  - ARTHRALGIA [None]
  - BONE PAIN [None]
  - DISABILITY [None]
  - DISCOMFORT [None]
  - DIZZINESS [None]
  - DRY EYE [None]
  - DYSPNOEA [None]
  - EYE PAIN [None]
  - FLATULENCE [None]
  - GASTRITIS [None]
  - HEADACHE [None]
  - HYPERSENSITIVITY [None]
  - INITIAL INSOMNIA [None]
  - IRON DEFICIENCY ANAEMIA [None]
  - LUNG DISORDER [None]
  - MALAISE [None]
  - MOUTH BREATHING [None]
  - MUSCLE SPASMS [None]
  - NASAL DISCOMFORT [None]
  - NAUSEA [None]
  - NON-CARDIAC CHEST PAIN [None]
  - PARAESTHESIA [None]
  - PNEUMONITIS [None]
  - RENAL PAIN [None]
  - RESPIRATORY DISORDER [None]
  - RHINORRHOEA [None]
  - SJOGREN'S SYNDROME [None]
  - SLEEP DISORDER [None]
  - WHEEZING [None]
